FAERS Safety Report 4784271-8 (Version None)
Quarter: 2005Q3

REPORT INFORMATION
  Report Type: 
  Country: None (occurrence: None)
  Receive Date: 20050928
  Receipt Date: 20050918
  Transmission Date: 20060218
  Serious: Yes (Other)
  Sender: FDA-Public Use
  Company Number: 2005-09-0270

PATIENT
  Age: 44 Year
  Sex: Male

DRUGS (9)
  1. PEG-INTRON (PEGINTERFERON ALFA-2B) REDIPEN [Suspect]
     Indication: HEPATITIS B
     Dosage: SUBCUTANEOUS
     Route: 058
     Dates: start: 20050621
  2. PEG-INTRON (PEGINTERFERON ALFA-2B) REDIPEN [Suspect]
     Indication: HEPATITIS C
     Dosage: SUBCUTANEOUS
     Route: 058
     Dates: start: 20050621
  3. REBETOL [Suspect]
     Indication: HEPATITIS B
     Dosage: ORAL
     Route: 048
     Dates: start: 20050621
  4. REBETOL [Suspect]
     Indication: HEPATITIS C
     Dosage: ORAL
     Route: 048
     Dates: start: 20050621
  5. CLONIDINE HCL [Concomitant]
  6. LEXAPRO (ESCITALOPRAM) TABLETS [Concomitant]
  7. MORPHINE SULFATE TABLETS [Concomitant]
  8. NEXIUM [Concomitant]
  9. XANAX [Concomitant]

REACTIONS (1)
  - CEREBROVASCULAR ACCIDENT [None]
